FAERS Safety Report 5448926-4 (Version None)
Quarter: 2007Q3

REPORT INFORMATION
  Report Type: 
  Country: None (occurrence: None)
  Receive Date: 20070906
  Receipt Date: 20070828
  Transmission Date: 20080115
  Serious: Yes (Hospitalization)
  Sender: FDA-Public Use
  Company Number: 2007RL000385

PATIENT
  Age: 64 Year
  Sex: Male

DRUGS (8)
  1. LOVAZA [Suspect]
     Indication: BLOOD CHOLESTEROL
     Dosage: GM;BID;PO, GM;BID;PO
     Route: 048
     Dates: end: 20070826
  2. LOVAZA [Suspect]
     Indication: BLOOD CHOLESTEROL
     Dosage: GM;BID;PO, GM;BID;PO
     Route: 048
     Dates: start: 20060101
  3. ASPIRIN [Concomitant]
  4. AMIODARONE HCL [Concomitant]
  5. CLINAPRIL [Concomitant]
  6. PROTONIX /01263201/ [Concomitant]
  7. METFORMIN HCL [Concomitant]
  8. VITAMIN E /00110501/ [Concomitant]

REACTIONS (5)
  - CORONARY ARTERY OCCLUSION [None]
  - DRUG INTOLERANCE [None]
  - DYSGEUSIA [None]
  - ERUCTATION [None]
  - NAUSEA [None]
